FAERS Safety Report 9317354 (Version 3)
Quarter: 2013Q3

REPORT INFORMATION
  Report Type: Spontaneous
  Country: US (occurrence: None)
  Receive Date: 20130524
  Receipt Date: 20130717
  Transmission Date: 20140515
  Serious: Yes (Death, Other)
  Sender: FDA-Public Use
  Company Number: 1718081

PATIENT
  Age: 52 Year
  Sex: Male
  Weight: 106.82 kg

DRUGS (1)
  1. PIPERACILLIN/TAZOBACTAM [Suspect]
     Indication: GASTROINTESTINAL INFECTION
     Dosage: 4.5 G GRAM(S) ( 1 HOUR ), INTRAVENOUS (NOT OTHERWISE SPECIFIED)
     Route: 042
     Dates: start: 20120602, end: 20120621

REACTIONS (2)
  - Renal failure [None]
  - Thrombosis [None]
